FAERS Safety Report 9476848 (Version 1)
Quarter: 2013Q3

REPORT INFORMATION
  Report Type: Spontaneous
  Country: IT (occurrence: IT)
  Receive Date: 20130826
  Receipt Date: 20130826
  Transmission Date: 20140515
  Serious: Yes (Hospitalization)
  Sender: FDA-Public Use
  Company Number: IT-WATSON-2013-14963

PATIENT
  Age: 53 Year
  Sex: Female

DRUGS (5)
  1. MIRTAZAPINE (UNKNOWN) [Suspect]
     Indication: INTENTIONAL SELF-INJURY
     Dosage: UNK
     Route: 048
     Dates: start: 20130730, end: 20130730
  2. SERTRALINE [Suspect]
     Indication: INTENTIONAL SELF-INJURY
     Dosage: UNK
     Route: 048
     Dates: start: 20130730, end: 20130730
  3. QUETIAPINE (UNKNOWN) [Suspect]
     Indication: INTENTIONAL SELF-INJURY
     Dosage: UNK
     Route: 048
     Dates: start: 20130730, end: 20130730
  4. PREGABALIN (UNKNOWN) [Suspect]
     Indication: INTENTIONAL SELF-INJURY
     Dosage: UNK
     Route: 048
     Dates: start: 20130730, end: 20130730
  5. DELORAZEPAM [Suspect]
     Indication: INTENTIONAL SELF-INJURY
     Dosage: UNK
     Route: 048
     Dates: start: 20130730, end: 20130730

REACTIONS (3)
  - Electrocardiogram QT prolonged [Recovering/Resolving]
  - Intentional self-injury [Recovering/Resolving]
  - Drug abuse [Recovering/Resolving]
